FAERS Safety Report 20377318 (Version 5)
Quarter: 2022Q3

REPORT INFORMATION
  Report Type: Report from Study
  Country: US (occurrence: US)
  Receive Date: 20220126
  Receipt Date: 20220924
  Transmission Date: 20221027
  Serious: Yes (Other)
  Sender: FDA-Public Use
  Company Number: US-NOVARTISTESTPH-NVSC2022US015754

PATIENT
  Age: 81 Year
  Sex: Female
  Weight: 71.21 kg

DRUGS (2)
  1. ENTRESTO [Suspect]
     Active Substance: SACUBITRIL\VALSARTAN
     Indication: Cardiac failure chronic
     Dosage: 1 DOSAGE FORM, BID (24.26 MG)
     Route: 048
     Dates: start: 2020
  2. ENTRESTO [Suspect]
     Active Substance: SACUBITRIL\VALSARTAN
     Indication: Chronic obstructive pulmonary disease
     Dosage: UNK
     Route: 065
     Dates: start: 202111

REACTIONS (12)
  - Pericardial effusion [Unknown]
  - Chest pain [Recovering/Resolving]
  - Urinary retention [Unknown]
  - Bladder spasm [Recovering/Resolving]
  - Memory impairment [Unknown]
  - Dyspnoea [Not Recovered/Not Resolved]
  - Malaise [Unknown]
  - Lung disorder [Recovering/Resolving]
  - COVID-19 [Not Recovered/Not Resolved]
  - Cough [Recovering/Resolving]
  - Throat clearing [Recovering/Resolving]
  - Back pain [Unknown]

NARRATIVE: CASE EVENT DATE: 20220124
